FAERS Safety Report 12428628 (Version 1)
Quarter: 2016Q2

REPORT INFORMATION
  Report Type: Other
  Country: US (occurrence: US)
  Receive Date: 20160602
  Receipt Date: 20160602
  Transmission Date: 20160815
  Serious: Yes (Hospitalization)
  Sender: FDA-Public Use
  Company Number: US-ACORDA-ACO_124417_2016

PATIENT
  Age: 39 Year
  Sex: Female

DRUGS (2)
  1. ALL OTHER THERAPEUTIC PRODUCTS [Concomitant]
     Active Substance: UNSPECIFIED INGREDIENT
     Indication: PAIN
     Dosage: UNK
     Route: 065
  2. AMPYRA [Suspect]
     Active Substance: DALFAMPRIDINE
     Indication: MULTIPLE SCLEROSIS
     Dosage: 10 MG, BID
     Route: 048
     Dates: start: 20160402

REACTIONS (8)
  - Sepsis [Unknown]
  - Urinary tract infection fungal [Unknown]
  - Neutrophil count increased [Unknown]
  - Urinary tract infection [Unknown]
  - White blood cell count increased [None]
  - Mental status changes [Unknown]
  - Pain [Unknown]
  - Troponin I increased [Unknown]

NARRATIVE: CASE EVENT DATE: 20160501
